FAERS Safety Report 16243438 (Version 1)
Quarter: 2019Q2

REPORT INFORMATION
  Report Type: Spontaneous
  Country: US (occurrence: US)
  Receive Date: 20190425
  Receipt Date: 20190425
  Transmission Date: 20190711
  Serious: No
  Sender: FDA-Public Use
  Company Number: None

PATIENT
  Age: 62 Year
  Sex: Female
  Weight: 113.5 kg

DRUGS (9)
  1. WARFARIN 4 MG [Concomitant]
     Active Substance: WARFARIN
     Dates: start: 20190405
  2. ATORVASTATIN [Suspect]
     Active Substance: ATORVASTATIN
     Indication: CARDIAC FAILURE
     Route: 048
     Dates: start: 20190405
  3. ISOSORBIDE DINITRATE 20MG [Concomitant]
     Dates: start: 20190405
  4. ATORVASTATIN [Suspect]
     Active Substance: ATORVASTATIN
     Indication: HYPERLIPIDAEMIA
     Route: 048
     Dates: start: 20190405
  5. ATORVASTATIN [Suspect]
     Active Substance: ATORVASTATIN
     Indication: HYPERTENSION
     Route: 048
     Dates: start: 20190405
  6. METOPROLOL 50 MG [Concomitant]
     Active Substance: METOPROLOL
     Dates: start: 20190405
  7. HYDRALAZINE 50 MG [Concomitant]
     Dates: start: 20190405
  8. FUROSEMIDE. [Concomitant]
     Active Substance: FUROSEMIDE
     Dates: start: 20190405
  9. ASPIRIN 81 MG [Concomitant]
     Active Substance: ASPIRIN
     Dates: start: 20190405

REACTIONS (1)
  - Myalgia [None]

NARRATIVE: CASE EVENT DATE: 20190415
